FAERS Safety Report 4393121-3 (Version None)
Quarter: 2004Q3

REPORT INFORMATION
  Report Type: 
  Country: None (occurrence: None)
  Receive Date: 20040706
  Receipt Date: 20040624
  Transmission Date: 20050211
  Serious: Yes (Hospitalization)
  Sender: FDA-Public Use
  Company Number: FR-BRISTOL-MYERS SQUIBB COMPANY-12625133

PATIENT
  Age: 45 Year
  Sex: Male

DRUGS (3)
  1. VIDEX [Suspect]
     Indication: HIV INFECTION
     Route: 048
     Dates: end: 20040322
  2. REBETOL [Interacting]
     Indication: HEPATITIS
     Route: 048
     Dates: start: 20030603, end: 20040322
  3. VIRAFERONPEG [Concomitant]

REACTIONS (2)
  - ABDOMINAL PAIN [None]
  - DRUG INTERACTION [None]
